FAERS Safety Report 18077597 (Version 1)
Quarter: 2020Q3

REPORT INFORMATION
  Report Type: Spontaneous
  Country: US (occurrence: US)
  Receive Date: 20200727
  Receipt Date: 20200727
  Transmission Date: 20201103
  Serious: No
  Sender: FDA-Public Use
  Company Number: US-BAUSCH-BL-2020-018920

PATIENT
  Sex: Female

DRUGS (6)
  1. LUPRON [Concomitant]
     Active Substance: LEUPROLIDE ACETATE
     Indication: PRODUCT USED FOR UNKNOWN INDICATION
     Route: 030
  2. UBRELVY [Concomitant]
     Active Substance: UBROGEPANT
     Indication: PRODUCT USED FOR UNKNOWN INDICATION
     Dosage: AS NEEDED
     Route: 048
  3. EXEMESTANE. [Concomitant]
     Active Substance: EXEMESTANE
     Indication: PRODUCT USED FOR UNKNOWN INDICATION
     Route: 048
  4. NURTEC ODT [Concomitant]
     Active Substance: RIMEGEPANT SULFATE
     Indication: PRODUCT USED FOR UNKNOWN INDICATION
     Dosage: AS NEEDED
     Route: 048
  5. DIHYDROERGOTAMINE MESYLATE NASAL SPRAY [Suspect]
     Active Substance: DIHYDROERGOTAMINE MESYLATE
     Indication: MIGRAINE
     Dosage: 1 SPRAY IN EACH NOSTRIL AS NEEDED AT THE ONSET OF A MIGRAINE; USED ABOUT ONCE A WEEK AT FIRST
     Route: 045
     Dates: start: 201906, end: 2019
  6. DIHYDROERGOTAMINE MESYLATE NASAL SPRAY [Suspect]
     Active Substance: DIHYDROERGOTAMINE MESYLATE
     Dosage: 1 SPRAY IN EACH NOSTRIL AS NEEDED AT THE ONSET OF A MIGRAINE; USED EVERY 2 WEEKS TO 20 DAYS
     Route: 045
     Dates: start: 2019, end: 201908

REACTIONS (3)
  - Therapy cessation [Unknown]
  - Insurance issue [Unknown]
  - Migraine [Unknown]

NARRATIVE: CASE EVENT DATE: 201908
